FAERS Safety Report 8051162-9 (Version None)
Quarter: 2012Q1

REPORT INFORMATION
  Report Type: 
  Country: None (occurrence: None)
  Receive Date: 20120117
  Receipt Date: 20120113
  Transmission Date: 20120608
  Serious: Yes (Other)
  Sender: FDA-Public Use
  Company Number: PHFR2011IE05179

PATIENT
  Sex: Female

DRUGS (18)
  1. VALPROATE SODIUM [Concomitant]
     Indication: EPILEPSY
     Dosage: 1800 MG
     Route: 048
  2. LITHIUM CARBONATE [Concomitant]
     Dosage: UNK UKN, UNK
     Dates: start: 20110830
  3. CYSTINE [Concomitant]
     Indication: HYPERTONIC BLADDER
     Dosage: 5 MG, BID
     Route: 048
  4. CYCLIZINE [Concomitant]
     Dosage: 500 MG, PRN
     Dates: start: 20110901
  5. CLOZARIL [Suspect]
     Indication: SCHIZOAFFECTIVE DISORDER
     Dosage: 150 MG, BID
     Route: 048
     Dates: start: 20101105, end: 20110902
  6. CHLORPROMAZINE [Concomitant]
     Dosage: UNK
  7. IMIQUIMOD [Concomitant]
     Indication: ANOGENITAL WARTS
     Dosage: UNK  THRICE PER WEEK
     Route: 061
     Dates: start: 20110822, end: 20110902
  8. GEINOLATE [Concomitant]
     Dosage: UNK
  9. LITHIUM CARBONATE [Concomitant]
     Indication: AFFECTIVE DISORDER
     Dosage: 408 MG
     Route: 048
     Dates: start: 20110830
  10. ALBUTEROL SULFATE AUTOHALER [Concomitant]
     Dosage: UNK UKN, QD
  11. CAPTIN [Concomitant]
     Dosage: UNK UKN, UNK
  12. MOVIPREP [Concomitant]
     Dosage: UNK UKN, TID
  13. LITHIUM CARBONATE [Concomitant]
     Dates: start: 20110903
  14. PROPRANOLOL [Concomitant]
     Indication: TREMOR
     Dosage: 10 MG, UNK
     Route: 048
  15. FLUTICASONE PROPIONATE/SALMETEROL [Concomitant]
     Dosage: UNK UKN, BID
  16. ARIPIPRAZOLE [Concomitant]
  17. METHADONE HCL [Concomitant]
     Dosage: UNK
  18. KWELLS [Concomitant]
     Dosage: UNK UKN, TID

REACTIONS (6)
  - NEUTROPHIL COUNT DECREASED [None]
  - PAROTID GLAND ENLARGEMENT [None]
  - VOMITING [None]
  - DIFFERENTIAL WHITE BLOOD CELL COUNT ABNORMAL [None]
  - NAUSEA [None]
  - SALIVARY GLAND PAIN [None]
